FAERS Safety Report 22118561 (Version 1)
Quarter: 2023Q1

REPORT INFORMATION
  Report Type: Report from Study
  Country: CA (occurrence: CA)
  Receive Date: 20230321
  Receipt Date: 20230321
  Transmission Date: 20230418
  Serious: Yes (Hospitalization)
  Sender: FDA-Public Use
  Company Number: CA-BAUSCH-BL-2023-003942

PATIENT
  Age: 18 Year
  Sex: Male

DRUGS (2)
  1. CONTRAVE [Suspect]
     Active Substance: BUPROPION HYDROCHLORIDE\NALTREXONE HYDROCHLORIDE
     Indication: Weight control
     Dosage: 90/8 MG
     Route: 048
     Dates: start: 20230131, end: 202302
  2. CONTRAVE [Suspect]
     Active Substance: BUPROPION HYDROCHLORIDE\NALTREXONE HYDROCHLORIDE
     Dosage: 90/8 MG, 2 TABS IN MORNING, 1 TAB IN EVENING
     Route: 048
     Dates: start: 202302, end: 20230220

REACTIONS (2)
  - Psychotic disorder [Not Recovered/Not Resolved]
  - Therapy cessation [Unknown]

NARRATIVE: CASE EVENT DATE: 20230220
